FAERS Safety Report 10310087 (Version 8)
Quarter: 2014Q4

REPORT INFORMATION
  Report Type: Spontaneous
  Country: DK (occurrence: DK)
  Receive Date: 20140717
  Receipt Date: 20141125
  Transmission Date: 20150528
  Serious: Yes (Other)
  Sender: FDA-Public Use
  Company Number: DK-JNJFOC-20131011854

PATIENT
  Sex: Female

DRUGS (6)
  1. ENBREL [Concomitant]
     Active Substance: ETANERCEPT
     Indication: ANKYLOSING SPONDYLITIS
     Route: 065
     Dates: start: 2013
  2. REMICADE [Suspect]
     Active Substance: INFLIXIMAB
     Indication: ANKYLOSING SPONDYLITIS
     Route: 042
     Dates: start: 20120423, end: 201211
  3. HUMIRA [Suspect]
     Active Substance: ADALIMUMAB
     Indication: HIDRADENITIS
     Route: 058
     Dates: start: 20121121, end: 20140108
  4. HUMIRA [Suspect]
     Active Substance: ADALIMUMAB
     Indication: ANKYLOSING SPONDYLITIS
     Route: 058
     Dates: start: 20121121, end: 20140108
  5. METHOTREXATE [Concomitant]
     Active Substance: METHOTREXATE
     Indication: ANKYLOSING SPONDYLITIS
     Route: 065
     Dates: start: 2013
  6. HUMIRA [Suspect]
     Active Substance: ADALIMUMAB
     Indication: ANKYLOSING SPONDYLITIS
     Route: 058
     Dates: start: 20121121, end: 20140108

REACTIONS (16)
  - Malignant melanoma [Not Recovered/Not Resolved]
  - Pain in jaw [Unknown]
  - Pain in extremity [Unknown]
  - Iritis [Unknown]
  - Hyperhidrosis [Unknown]
  - Fatigue [Unknown]
  - Paraesthesia [Unknown]
  - Drug ineffective [Unknown]
  - Groin pain [Unknown]
  - Procedural pain [Unknown]
  - Psoriasis [Recovered/Resolved]
  - Rash pustular [Unknown]
  - Hidradenitis [Unknown]
  - Pustular psoriasis [Recovered/Resolved]
  - Off label use [Unknown]
  - Movement disorder [Unknown]

NARRATIVE: CASE EVENT DATE: 2012
